FAERS Safety Report 22001330 (Version 5)
Quarter: 2023Q2

REPORT INFORMATION
  Report Type: Report from Study
  Country: US (occurrence: US)
  Receive Date: 20230216
  Receipt Date: 20230615
  Transmission Date: 20230722
  Serious: Yes (Other)
  Sender: FDA-Public Use
  Company Number: US-002147023-NVSC2023US035659

PATIENT
  Sex: Female
  Weight: 95.3 kg

DRUGS (9)
  1. KESIMPTA [Suspect]
     Active Substance: OFATUMUMAB
     Indication: Multiple sclerosis
     Dosage: 20 MG, QMO (INJECT 20 MG BENEATH THE SKIN EVERY 30 DAYS.)
     Route: 058
  2. NUVIGIL [Concomitant]
     Active Substance: ARMODAFINIL
     Indication: Fatigue
     Dosage: 1 DOSAGE FORM, QD (BY MOUTH, 1 REFILL)
     Route: 048
     Dates: start: 20220512
  3. BIOTIN [Concomitant]
     Active Substance: BIOTIN
     Indication: Product used for unknown indication
     Dosage: 10 MG
     Route: 048
  4. CALCIUM [Concomitant]
     Active Substance: CALCIUM
     Indication: Product used for unknown indication
     Dosage: 40 MG (800 UNITS)
     Route: 048
  5. VITAMIN D3 [Concomitant]
     Active Substance: CHOLECALCIFEROL
     Indication: Product used for unknown indication
     Dosage: 2 DOSAGE FORM, QW ( (5,000 UNITS BY MOUTH 2 X PER WEEK))
     Route: 048
  6. VITAMIN D3 [Concomitant]
     Active Substance: CHOLECALCIFEROL
     Dosage: 1000 IU, QD
     Route: 048
  7. VITAMINS [Concomitant]
     Active Substance: VITAMINS
     Indication: Product used for unknown indication
     Dosage: 1 DOSAGE FORM, QD
     Route: 048
  8. ZOMIG [Concomitant]
     Active Substance: ZOLMITRIPTAN
     Indication: Product used for unknown indication
     Dosage: 1 DOSAGE FORM, PRN (BY MOUTH TAKEN 1 TABLET AS NEEDED. 1 REFILL)
     Route: 048
     Dates: start: 20201116
  9. COPAXONE [Concomitant]
     Active Substance: GLATIRAMER ACETATE
     Indication: Product used for unknown indication
     Dosage: TIW, (3 TIMES PER WEEK ATLEAST 48 HOURS APART)
     Route: 058
     Dates: start: 20230420

REACTIONS (8)
  - Scleroderma [Unknown]
  - Hypertension [Unknown]
  - Vitamin D increased [Unknown]
  - Eye disorder [Unknown]
  - Visual impairment [Unknown]
  - Antinuclear antibody [Unknown]
  - Cranial nerve disorder [Unknown]
  - Drug ineffective [Unknown]
